FAERS Safety Report 19145081 (Version 13)
Quarter: 2023Q1

REPORT INFORMATION
  Report Type: Report from Study
  Country: CN (occurrence: None)
  Receive Date: 20210416
  Receipt Date: 20230118
  Transmission Date: 20230417
  Serious: Yes (Death, Life-Threatening, Hospitalization)
  Sender: FDA-Public Use
  Company Number: CN-ROCHE-2808485

PATIENT
  Age: 69 Year
  Sex: Male
  Weight: 58 kg

DRUGS (32)
  1. PLACEBO [Suspect]
     Active Substance: UNSPECIFIED INGREDIENT
     Indication: Non-small cell lung cancer stage IV
     Dosage: ON 23/FEB/2021, THE PATIENT RECEIVED MOST RECENT DOSE PRIOR TO SERIOUS ADVERSE EVENT.
     Route: 041
     Dates: start: 20200730
  2. BEVACIZUMAB [Suspect]
     Active Substance: BEVACIZUMAB
     Indication: Non-small cell lung cancer stage IV
     Dosage: ON 23/MAR/2021 AND 23/FEB/2021 THE PATIENT RECEIVED MOST RECENT DOSE 920 MG PRIOR TO SERIOUS ADVERSE
     Route: 042
     Dates: start: 20200730
  3. CARBOPLATIN [Suspect]
     Active Substance: CARBOPLATIN
     Indication: Non-small cell lung cancer stage IV
     Dosage: ON 14/OCT/2020, 23/FEB/2021 THE PATIENT RECEIVED MOST RECENT DOSE 200 MG PRIOR TO SERIOUS ADVERSE EV
     Route: 042
     Dates: start: 20200730
  4. PEMETREXED [Suspect]
     Active Substance: PEMETREXED
     Indication: Non-small cell lung cancer stage IV
     Dosage: ON 23/FEB/2021, THE PATIENT RECEIVED MOST RECENT DOSE 600 MG PRIOR TO SAE ONSET.
     Route: 042
     Dates: start: 20200730
  5. ISOSORBIDE MONONITRATE [Concomitant]
     Active Substance: ISOSORBIDE MONONITRATE
     Dates: start: 20210316, end: 20210322
  6. ISOSORBIDE MONONITRATE [Concomitant]
     Active Substance: ISOSORBIDE MONONITRATE
     Dates: start: 20210322, end: 20210404
  7. CREATINE [Concomitant]
     Active Substance: CREATINE
     Dates: start: 20210316, end: 20210322
  8. FUROSEMIDE [Concomitant]
     Active Substance: FUROSEMIDE
     Indication: Polyuria
     Dates: start: 20210315, end: 20210322
  9. ASPIRIN [Concomitant]
     Active Substance: ASPIRIN
     Dates: start: 20210316, end: 20210320
  10. CLOPIDOGREL BISULFATE [Concomitant]
     Active Substance: CLOPIDOGREL BISULFATE
     Dates: start: 20210316, end: 20210318
  11. COENZYME Q10 [Concomitant]
     Active Substance: DIETARY SUPPLEMENT\UBIDECARENONE
     Dates: start: 20210318, end: 20210322
  12. TRIMETAZIDINE DIHYDROCHLORIDE [Concomitant]
     Active Substance: TRIMETAZIDINE DIHYDROCHLORIDE
     Dates: start: 20210318, end: 20210322
  13. IPRATROPIUM BROMIDE [Concomitant]
     Active Substance: IPRATROPIUM BROMIDE
     Indication: Dyspnoea
     Dates: start: 20210318, end: 20210322
  14. MONTELUKAST SODIUM [Concomitant]
     Active Substance: MONTELUKAST SODIUM
     Indication: Dyspnoea
     Dates: start: 20210318, end: 20210322
  15. RECOMBINANT HUMAN THROMBOPOIETIN (UNK INGREDIENTS) [Concomitant]
     Dates: start: 20210319, end: 20210322
  16. ERYTHROPOIETIN [Concomitant]
     Active Substance: ERYTHROPOIETIN
     Dates: start: 20210319, end: 20210322
  17. RIVAROXABAN [Concomitant]
     Active Substance: RIVAROXABAN
     Dates: start: 20210319, end: 20210320
  18. SODIUM BICARBONATE [Concomitant]
     Active Substance: SODIUM BICARBONATE
     Dates: start: 20210315, end: 20210315
  19. IVABRADINE HYDROCHLORIDE [Concomitant]
     Active Substance: IVABRADINE HYDROCHLORIDE
     Dates: start: 20210316, end: 20210316
  20. AMIODARONE HYDROCHLORIDE [Concomitant]
     Active Substance: AMIODARONE HYDROCHLORIDE
     Dates: start: 20210316, end: 20210316
  21. MONTMORILLONITE [Concomitant]
     Active Substance: MONTMORILLONITE
     Indication: Diarrhoea
     Dates: start: 20210311, end: 20210311
  22. ENOXAPARIN SODIUM [Concomitant]
     Active Substance: ENOXAPARIN SODIUM
     Dates: start: 20210316, end: 20210317
  23. TRIMETAZIDINE DIHYDROCHLORIDE [Concomitant]
     Active Substance: TRIMETAZIDINE DIHYDROCHLORIDE
     Dates: start: 20210322, end: 20210404
  24. UBIDECARENONE [Concomitant]
     Active Substance: UBIDECARENONE
     Dates: start: 20210322, end: 20210404
  25. DESLANOSIDE [Concomitant]
     Active Substance: DESLANOSIDE
     Dates: start: 20210315, end: 20210315
  26. MULTIVITAMIN AND ELEMENTS TABLETS (29-II) [Concomitant]
     Dates: start: 20210322, end: 20210404
  27. CAFFEIC ACID [Concomitant]
     Active Substance: CAFFEIC ACID
     Dates: start: 20210322, end: 20210404
  28. MEGESTROL ACETATE [Concomitant]
     Active Substance: MEGESTROL ACETATE
     Dates: start: 20210322, end: 20210404
  29. THEOPHYLLINE [Concomitant]
     Active Substance: THEOPHYLLINE
     Dates: start: 20210322, end: 20210404
  30. TIOTROPIUM BROMIDE [Concomitant]
     Active Substance: TIOTROPIUM BROMIDE
     Dates: start: 20210322, end: 20210404
  31. FUROSEMIDE [Concomitant]
     Active Substance: FUROSEMIDE
     Dates: start: 20210322, end: 20210404
  32. SPIRONOLACTONE [Concomitant]
     Active Substance: SPIRONOLACTONE
     Dates: start: 20210322, end: 20210404

REACTIONS (2)
  - Death [Fatal]
  - Coagulopathy [Not Recovered/Not Resolved]

NARRATIVE: CASE EVENT DATE: 20210407
